FAERS Safety Report 8187713-3 (Version None)
Quarter: 2012Q1

REPORT INFORMATION
  Report Type: 
  Country: None (occurrence: None)
  Receive Date: 20120306
  Receipt Date: 20120119
  Transmission Date: 20120608
  Serious: No
  Sender: FDA-Public Use
  Company Number: US-GLAXOSMITHKLINE-A0962223A

PATIENT
  Age: 44 Year
  Sex: Female

DRUGS (4)
  1. PROZAC [Concomitant]
  2. RITALIN [Concomitant]
  3. ABILIFY [Concomitant]
  4. LAMICTAL [Suspect]
     Indication: BIPOLAR DISORDER
     Dosage: 25MG PER DAY
     Route: 048
     Dates: start: 20120105

REACTIONS (1)
  - RASH [None]
